FAERS Safety Report 6121004-7 (Version None)
Quarter: 2009Q1

REPORT INFORMATION
  Report Type: 
  Country: None (occurrence: None)
  Receive Date: 20090312
  Receipt Date: 20090312
  Transmission Date: 20090719
  Serious: No
  Sender: FDA-Public Use
  Company Number: None

PATIENT
  Age: 66 Year
  Sex: Female

DRUGS (1)
  1. BONIVA [Suspect]
     Indication: OSTEOPOROSIS
     Dosage: 3MG ONE TIME IV DRIP
     Route: 041
     Dates: start: 20090212, end: 20090212

REACTIONS (2)
  - ARTHRALGIA [None]
  - SKIN DISCOLOURATION [None]
